FAERS Safety Report 25546703 (Version 1)
Quarter: 2025Q3

REPORT INFORMATION
  Report Type: Spontaneous
  Country: RU (occurrence: RU)
  Receive Date: 20250714
  Receipt Date: 20250714
  Transmission Date: 20251021
  Serious: Yes (Other)
  Sender: ABBVIE
  Company Number: RU-RICHTER-2025-GR-007839

PATIENT
  Age: 40 Year
  Sex: Male
  Weight: 87 kg

DRUGS (4)
  1. CARIPRAZINE [Suspect]
     Active Substance: CARIPRAZINE
     Indication: Schizophrenia
     Route: 048
     Dates: start: 20250529, end: 20250627
  2. Mirtazapine Canon [Concomitant]
     Indication: Schizophrenia
     Route: 048
     Dates: start: 20250430
  3. PAROXETINE [Concomitant]
     Active Substance: PAROXETINE
     Indication: Depression
     Route: 048
  4. TRIHEXYPHENIDYL [Concomitant]
     Active Substance: TRIHEXYPHENIDYL
     Indication: Schizophrenia
     Route: 048

REACTIONS (4)
  - Appetite disorder [Unknown]
  - Sleep disorder [Unknown]
  - Fear [Unknown]
  - Hallucination, auditory [Unknown]

NARRATIVE: CASE EVENT DATE: 20250624
